FAERS Safety Report 21034171 (Version 2)
Quarter: 2022Q3

REPORT INFORMATION
  Report Type: Report from Study
  Country: KR (occurrence: KR)
  Receive Date: 20220701
  Receipt Date: 20220712
  Transmission Date: 20221026
  Serious: Yes (Hospitalization)
  Sender: FDA-Public Use
  Company Number: KR-TEVA-2022-KR-2051469

PATIENT
  Age: 42 Year
  Sex: Female
  Weight: 42 kg

DRUGS (22)
  1. AJOVY [Suspect]
     Active Substance: FREMANEZUMAB-VFRM
     Indication: Migraine prophylaxis
     Dosage: 675 MILLIGRAM DAILY;
     Route: 058
     Dates: start: 20220331, end: 20220331
  2. TRAZODONE HYDROCHLORIDE [Concomitant]
     Active Substance: TRAZODONE HYDROCHLORIDE
     Indication: Depression
     Dosage: 50 MILLIGRAM DAILY; DAILY DOSE 1 TAB
     Route: 048
     Dates: start: 20210827
  3. DOXA [Concomitant]
     Indication: Depression
     Dosage: 6 MILLIGRAM DAILY;
     Route: 048
     Dates: start: 20170310
  4. RIVOTRIL [Concomitant]
     Active Substance: CLONAZEPAM
     Indication: Depression
     Dosage: .5 MILLIGRAM DAILY;
     Route: 048
     Dates: start: 20201111
  5. QUETIAPINE FUMARATE [Concomitant]
     Active Substance: QUETIAPINE FUMARATE
     Indication: Depression
     Dosage: 100 MILLIGRAM DAILY;
     Route: 048
     Dates: start: 20201111
  6. ZOLPIDEM TARTRATE [Concomitant]
     Active Substance: ZOLPIDEM TARTRATE
     Indication: Depression
     Dosage: 10 MILLIGRAM DAILY;
     Route: 048
     Dates: start: 20201118
  7. ZOLPIDEM TARTRATE [Concomitant]
     Active Substance: ZOLPIDEM TARTRATE
     Indication: Depression
     Dosage: 6.25 MILLIGRAM DAILY;
     Route: 048
     Dates: start: 20181006
  8. MELATONIN [Concomitant]
     Active Substance: MELATONIN
     Indication: Depression
     Dosage: 2 MILLIGRAM DAILY;
     Route: 048
     Dates: start: 20210827
  9. CEFUROTIL [Concomitant]
     Indication: Pelvic inflammatory disease
     Dosage: 500 MILLIGRAM DAILY;
     Route: 048
     Dates: start: 20220127
  10. ACECLE [Concomitant]
     Indication: Pelvic inflammatory disease
     Dosage: 200 MILLIGRAM DAILY;
     Route: 048
     Dates: start: 20220127
  11. MOPUREN [Concomitant]
     Indication: Pelvic inflammatory disease
     Dosage: DAILY DOSE: 2 TABLETS
     Route: 048
     Dates: end: 20220127
  12. MEDILAC-DS [Concomitant]
     Indication: Prophylaxis
     Dosage: ENTEROCOCCUS FAECIUM CULTURE, DAILY DOSE 2 CAPSULE
     Route: 048
     Dates: start: 20220121
  13. ENTELON [Concomitant]
     Indication: Pelvic inflammatory disease
     Dosage: 300 MILLIGRAM DAILY;
     Route: 048
     Dates: start: 20220127
  14. VASTINAN MR SR [Concomitant]
     Indication: Angina pectoris
     Dosage: 70 MILLIGRAM DAILY;
     Route: 048
     Dates: start: 20211208
  15. NICORANDIL [Concomitant]
     Active Substance: NICORANDIL
     Indication: Angina pectoris
     Dosage: 10 MILLIGRAM DAILY;
     Route: 048
  16. METOCLOPRAMIDE HYDROCHLORIDE [Concomitant]
     Active Substance: METOCLOPRAMIDE HYDROCHLORIDE
     Indication: Migraine
     Dosage: DAILY DOSE: 1 TAB
     Route: 048
     Dates: start: 20170804
  17. DUOCET [Concomitant]
     Indication: Migraine
     Dosage: DAILY DOSE: 1 TABLET
     Route: 048
     Dates: start: 20211208
  18. ZOMIG [Concomitant]
     Active Substance: ZOLMITRIPTAN
     Indication: Migraine
     Dosage: 2.5 MILLIGRAM DAILY;
     Route: 048
     Dates: start: 20170222
  19. LYRICA [Concomitant]
     Active Substance: PREGABALIN
     Indication: Migraine
     Dosage: 25 MILLIGRAM DAILY;
     Route: 048
     Dates: start: 20220317, end: 20220324
  20. LYRICA [Concomitant]
     Active Substance: PREGABALIN
     Dosage: 50 MILLIGRAM DAILY;
     Route: 048
     Dates: start: 20220325, end: 20220401
  21. LYRICA [Concomitant]
     Active Substance: PREGABALIN
     Dosage: 75 MILLIGRAM DAILY;
     Route: 048
     Dates: start: 20220402
  22. PAXIL [Concomitant]
     Active Substance: PAROXETINE HYDROCHLORIDE
     Indication: Depression
     Dosage: 12.5 MILLIGRAM DAILY;
     Route: 048
     Dates: start: 20220525

REACTIONS (1)
  - Angina pectoris [Recovered/Resolved]

NARRATIVE: CASE EVENT DATE: 20220524
